FAERS Safety Report 5724512-3 (Version None)
Quarter: 2008Q2

REPORT INFORMATION
  Report Type: 
  Country: None (occurrence: None)
  Receive Date: 20080501
  Receipt Date: 20080424
  Transmission Date: 20081010
  Serious: Yes (Other)
  Sender: FDA-Public Use
  Company Number: GB-RANBAXY-2008RR-14706

PATIENT

DRUGS (2)
  1. RANITIDINE HCL [Suspect]
     Indication: GASTROOESOPHAGEAL REFLUX DISEASE
     Dosage: 100 MG, BID
     Route: 048
     Dates: start: 20080306, end: 20080319
  2. RANITIDINE HCL [Suspect]
     Indication: VOMITING

REACTIONS (1)
  - TOXIC EPIDERMAL NECROLYSIS [None]
